FAERS Safety Report 21645903 (Version 1)
Quarter: 2022Q4

REPORT INFORMATION
  Report Type: Report from Study
  Country: US (occurrence: US)
  Receive Date: 20221126
  Receipt Date: 20221126
  Transmission Date: 20230112
  Serious: No
  Sender: FDA-Public Use
  Company Number: US-ABBVIE-4178923

PATIENT
  Sex: Male

DRUGS (4)
  1. HUMIRA [Suspect]
     Active Substance: ADALIMUMAB
     Indication: Ankylosing spondylitis
     Dosage: CF, FORM STRENGTH: 40 MILLIGRAM
     Route: 058
  2. Pfizer/BioNTech, Covid-19 vaccine [Concomitant]
     Indication: COVID-19 immunisation
     Dosage: FIRST DOSE
     Route: 030
  3. Pfizer/BioNTech, Covid-19 vaccine [Concomitant]
     Indication: COVID-19 immunisation
     Dosage: SECOND DOSE
     Route: 030
  4. Pfizer/BioNTech, Covid-19 vaccine [Concomitant]
     Indication: COVID-19 immunisation
     Dosage: THIRD (BOOSTER) DOSE
     Route: 030

REACTIONS (4)
  - Therapeutic product effect incomplete [Not Recovered/Not Resolved]
  - Back pain [Not Recovered/Not Resolved]
  - Spinal pain [Unknown]
  - Ankylosing spondylitis [Unknown]
